FAERS Safety Report 24175596 (Version 1)
Quarter: 2024Q3

REPORT INFORMATION
  Report Type: Spontaneous
  Country: US (occurrence: US)
  Receive Date: 20240805
  Receipt Date: 20240805
  Transmission Date: 20241017
  Serious: No
  Sender: JOHNSON AND JOHNSON
  Company Number: US-JNJFOC-20240775289

PATIENT
  Sex: Female

DRUGS (1)
  1. MENS ROGAINE EXTRA STRENGTH [Suspect]
     Active Substance: MINOXIDIL
     Indication: Alopecia
     Dosage: ONE PUMP OF FOAM A DAY
     Route: 061

REACTIONS (5)
  - Hair disorder [Recovered/Resolved]
  - Skin disorder [Recovered/Resolved]
  - Palpitations [Recovered/Resolved]
  - Product use issue [Unknown]
  - Intentional product misuse [Unknown]
